FAERS Safety Report 13121363 (Version 1)
Quarter: 2017Q1

REPORT INFORMATION
  Report Type: Spontaneous
  Country: US (occurrence: US)
  Receive Date: 20170117
  Receipt Date: 20170117
  Transmission Date: 20170428
  Serious: Yes (Hospitalization, Other)
  Sender: FDA-Public Use
  Company Number: US-LUNDBECK-DKLU2024981

PATIENT
  Sex: Male

DRUGS (3)
  1. SABRIL [Suspect]
     Active Substance: VIGABATRIN
     Route: 048
     Dates: start: 2015
  2. SABRIL [Suspect]
     Active Substance: VIGABATRIN
     Indication: SEIZURE
     Route: 048
     Dates: start: 2010, end: 2012
  3. SABRIL [Suspect]
     Active Substance: VIGABATRIN
     Route: 048
     Dates: start: 2015

REACTIONS (6)
  - Brain malformation [Unknown]
  - Decreased appetite [Unknown]
  - Retinal degeneration [Unknown]
  - Weight decreased [Unknown]
  - Visual field defect [Unknown]
  - Seizure [Unknown]

NARRATIVE: CASE EVENT DATE: 2012
